FAERS Safety Report 7332838-5 (Version None)
Quarter: 2011Q1

REPORT INFORMATION
  Report Type: 
  Country: None (occurrence: None)
  Receive Date: 20110304
  Receipt Date: 20110223
  Transmission Date: 20110831
  Serious: Yes (Hospitalization, Disabling, Other)
  Sender: FDA-Public Use
  Company Number: US-MERCK-1010USA01921

PATIENT
  Age: 65 Year
  Sex: Female
  Weight: 79 kg

DRUGS (6)
  1. FOSAMAX [Suspect]
     Indication: OSTEOPENIA
     Route: 048
     Dates: start: 19980101
  2. FOSAMAX [Suspect]
     Route: 048
     Dates: start: 20061201
  3. FOSAMAX [Suspect]
     Indication: BONE DENSITY DECREASED
     Route: 048
     Dates: start: 19980101
  4. COZAAR [Concomitant]
     Indication: HYPERTENSION
     Route: 064
     Dates: start: 19950101, end: 20080101
  5. FOSAMAX [Suspect]
     Route: 048
     Dates: start: 20061201
  6. FOSAMAX PLUS D [Suspect]
     Indication: OSTEOPENIA
     Route: 048
     Dates: start: 19980101, end: 20100201

REACTIONS (13)
  - URINARY TRACT INFECTION [None]
  - CERUMEN IMPACTION [None]
  - UTERINE LEIOMYOMA [None]
  - GINGIVAL BLEEDING [None]
  - BLOOD CHOLESTEROL INCREASED [None]
  - ARTHROPATHY [None]
  - MITRAL VALVE INCOMPETENCE [None]
  - TRICUSPID VALVE INCOMPETENCE [None]
  - OVARIAN CYST [None]
  - FEMUR FRACTURE [None]
  - INTERVERTEBRAL DISC DEGENERATION [None]
  - ANGINA PECTORIS [None]
  - DEPRESSION [None]
